FAERS Safety Report 9694792 (Version 2)
Quarter: 2013Q4

REPORT INFORMATION
  Report Type: Report from Study
  Country: CA (occurrence: CA)
  Receive Date: 20131119
  Receipt Date: 20131119
  Transmission Date: 20140711
  Serious: Yes (Other)
  Sender: FDA-Public Use
  Company Number: CA-JNJFOC-20130808898

PATIENT
  Sex: Male
  Weight: 54.43 kg

DRUGS (2)
  1. REMICADE [Suspect]
     Indication: ANKYLOSING SPONDYLITIS
     Route: 042
     Dates: start: 201306
  2. REMICADE [Suspect]
     Indication: ANKYLOSING SPONDYLITIS
     Route: 042

REACTIONS (6)
  - Depressed mood [Unknown]
  - Pain in extremity [Recovering/Resolving]
  - Spinal pain [Unknown]
  - Neck pain [Unknown]
  - Drug ineffective [Unknown]
  - Back pain [Unknown]
